FAERS Safety Report 24734438 (Version 1)
Quarter: 2024Q4

REPORT INFORMATION
  Report Type: Spontaneous
  Country: MY (occurrence: MY)
  Receive Date: 20241214
  Receipt Date: 20241214
  Transmission Date: 20250115
  Serious: Yes (Hospitalization, Other)
  Sender: ALKEM
  Company Number: None

PATIENT
  Age: 33 Year
  Sex: Female

DRUGS (2)
  1. MYCOPHENOLATE MOFETIL [Suspect]
     Active Substance: MYCOPHENOLATE MOFETIL
     Indication: Lupus nephritis
     Dosage: 75 MILLIGRAM, BID (EVERY 12 HOUR) TABLET
     Route: 065
  2. PREDNISOLONE [Suspect]
     Active Substance: PREDNISOLONE
     Indication: Lupus nephritis
     Dosage: 60 MILLIGRAM, OD (EVERY 24 HOURS)
     Route: 065

REACTIONS (4)
  - Bacteraemia [Recovering/Resolving]
  - Brain abscess [Recovering/Resolving]
  - Listeriosis [Recovering/Resolving]
  - Meningitis [Recovering/Resolving]
